FAERS Safety Report 25750501 (Version 1)
Quarter: 2025Q3

REPORT INFORMATION
  Report Type: Spontaneous
  Country: US (occurrence: None)
  Receive Date: 20250829
  Receipt Date: 20250829
  Transmission Date: 20251021
  Serious: Yes (Life-Threatening, Hospitalization, Disabling, Congenital Anomaly, Other)
  Sender: FDA-CTU
  Company Number: None

PATIENT
  Age: 24 Year
  Sex: Male
  Weight: 83.25 kg

DRUGS (13)
  1. RISPERDAL [Suspect]
     Active Substance: RISPERIDONE
     Indication: Product used for unknown indication
     Dosage: OTHER QUANTITY : 1 CAPSULE(S);?FREQUENCY : TWICE A DAY;?
     Route: 048
  2. ZYPREXA [Suspect]
     Active Substance: OLANZAPINE
  3. HALDOL [Suspect]
     Active Substance: HALOPERIDOL
  4. LITHIUM [Suspect]
     Active Substance: LITHIUM
  5. Perphezenazine [Concomitant]
  6. CLONAZEPAM [Concomitant]
     Active Substance: CLONAZEPAM
  7. Gluybride [Concomitant]
  8. LOVASTATIN [Concomitant]
     Active Substance: LOVASTATIN
  9. TRULICITY [Concomitant]
     Active Substance: DULAGLUTIDE
  10. METFORMIN [Concomitant]
     Active Substance: METFORMIN HYDROCHLORIDE
  11. VITAMIN D [Concomitant]
     Active Substance: VITAMIN D NOS
  12. VANADIUM [Concomitant]
     Active Substance: VANADIUM
  13. ADVIL [Concomitant]
     Active Substance: IBUPROFEN

REACTIONS (2)
  - Feeling abnormal [None]
  - Product prescribing issue [None]

NARRATIVE: CASE EVENT DATE: 19930912
